FAERS Safety Report 18426668 (Version 1)
Quarter: 2020Q4

REPORT INFORMATION
  Report Type: Spontaneous
  Country: US (occurrence: US)
  Receive Date: 20201026
  Receipt Date: 20201026
  Transmission Date: 20210114
  Serious: Yes (Other)
  Sender: FDA-Public Use
  Company Number: None

PATIENT
  Age: 62 Year
  Sex: Male
  Weight: 94.5 kg

DRUGS (10)
  1. PEPCID AC [Concomitant]
     Active Substance: FAMOTIDINE
  2. METFORMIN [Concomitant]
     Active Substance: METFORMIN HYDROCHLORIDE
  3. PHILLIPS COLON HEALTH [Concomitant]
  4. LOSARTAN POTASSIUM 50MG TABLETS [Suspect]
     Active Substance: LOSARTAN POTASSIUM
     Indication: HYPERTENSION
     Dosage: ?          QUANTITY:90 TABLET(S);?
     Route: 048
  5. BEANO [Concomitant]
     Active Substance: ASPERGILLUS NIGER .ALPHA.-GALACTOSIDASE
  6. CARVEDILOL. [Concomitant]
     Active Substance: CARVEDILOL
  7. ROSUVASTATIN. [Concomitant]
     Active Substance: ROSUVASTATIN
  8. LOSARTAN. [Concomitant]
     Active Substance: LOSARTAN
  9. GAS-X EXTRA STRENGTH [Concomitant]
     Active Substance: DIMETHICONE
  10. TUMS [Concomitant]
     Active Substance: CALCIUM CARBONATE

REACTIONS (4)
  - Insomnia [None]
  - Abdominal distension [None]
  - Eructation [None]
  - Flatulence [None]

NARRATIVE: CASE EVENT DATE: 20201011
